FAERS Safety Report 7313553-0 (Version None)
Quarter: 2011Q1

REPORT INFORMATION
  Report Type: 
  Country: None (occurrence: None)
  Receive Date: 20110225
  Receipt Date: 20110212
  Transmission Date: 20110831
  Serious: Yes (Hospitalization, Other)
  Sender: FDA-Public Use
  Company Number: US-PAR PHARMACEUTICAL, INC-2011SCPR002689

PATIENT
  Age: 47 Year
  Sex: Female

DRUGS (3)
  1. WEIGHT LOSS SUPPLEMENT [Concomitant]
     Indication: OBESITY
     Dosage: UNK
     Route: 065
  2. CALCIUM CARBONATE [Suspect]
     Indication: DYSPEPSIA
     Dosage: UPTO 4500 MG/DAY
     Route: 065
  3. IBUPROFEN [Suspect]
     Indication: BACK PAIN
     Dosage: UPTO 3600 MG/ DAY
     Route: 065

REACTIONS (11)
  - RENAL FAILURE ACUTE [None]
  - HYPERCALCAEMIA [None]
  - GASTRITIS EROSIVE [None]
  - INTERNATIONAL NORMALISED RATIO INCREASED [None]
  - BLOOD 1,25-DIHYDROXYCHOLECALCIFEROL DECREASED [None]
  - ANAEMIA [None]
  - MILK-ALKALI SYNDROME [None]
  - DEHYDRATION [None]
  - PROTHROMBIN TIME PROLONGED [None]
  - TOXICITY TO VARIOUS AGENTS [None]
  - VITAMIN A DECREASED [None]
